FAERS Safety Report 13194581 (Version 1)
Quarter: 2017Q1

REPORT INFORMATION
  Report Type: Spontaneous
  Country: US (occurrence: US)
  Receive Date: 20170207
  Receipt Date: 20170207
  Transmission Date: 20170428
  Serious: Yes (Other)
  Sender: FDA-Public Use
  Company Number: US-JAZZ-2016-US-008306

PATIENT
  Age: 54 Year
  Sex: Female

DRUGS (3)
  1. DILAUDID [Suspect]
     Active Substance: HYDROMORPHONE HYDROCHLORIDE
     Indication: SPINAL PAIN
     Dosage: UNK MG, QH
     Route: 037
  2. NEURONTIN [Suspect]
     Active Substance: GABAPENTIN
  3. PRIALT [Suspect]
     Active Substance: ZICONOTIDE ACETATE
     Indication: SPINAL PAIN
     Dosage: UNK ?G, QD
     Route: 037

REACTIONS (6)
  - Suicidal ideation [Unknown]
  - Cerebrospinal fluid leakage [Recovered/Resolved]
  - Gait disturbance [Unknown]
  - Hyperhidrosis [Unknown]
  - Anxiety [Unknown]
  - Disorientation [Unknown]

NARRATIVE: CASE EVENT DATE: 20160428
